FAERS Safety Report 25477523 (Version 3)
Quarter: 2025Q3

REPORT INFORMATION
  Report Type: Spontaneous
  Country: JP (occurrence: JP)
  Receive Date: 20250625
  Receipt Date: 20250808
  Transmission Date: 20251020
  Serious: Yes (Death, Life-Threatening, Hospitalization, Other)
  Sender: ALEXION PHARMACEUTICALS
  Company Number: JP-ASTRAZENECA-250061955_012620_P_1

PATIENT
  Age: 75 Year
  Sex: Female
  Weight: 45 kg

DRUGS (3)
  1. FASLODEX [Suspect]
     Active Substance: FULVESTRANT
     Indication: Breast cancer
  2. FASLODEX [Suspect]
     Active Substance: FULVESTRANT
  3. TRUQAP [Suspect]
     Active Substance: CAPIVASERTIB
     Indication: Breast cancer
     Dosage: ON A 4-DAY-ON, 3-DAY-OFF SCHEDULE
     Dates: start: 20250527, end: 20250615

REACTIONS (23)
  - Condition aggravated [Unknown]
  - Hyperglycaemia [Not Recovered/Not Resolved]
  - Lactic acidosis [Unknown]
  - Bronchopulmonary aspergillosis [Unknown]
  - Physical deconditioning [Unknown]
  - Blood lactate dehydrogenase increased [Not Recovered/Not Resolved]
  - Blood bilirubin abnormal [Unknown]
  - Diabetic ketoacidosis [Not Recovered/Not Resolved]
  - Blood creatine phosphokinase increased [Not Recovered/Not Resolved]
  - Hepatic function abnormal [Not Recovered/Not Resolved]
  - Acute kidney injury [Not Recovered/Not Resolved]
  - Cardiac arrest [Unknown]
  - Liver disorder [Unknown]
  - Cardiac failure [Unknown]
  - Hepatic enzyme increased [Unknown]
  - Tracheostomy [Unknown]
  - KL-6 increased [Unknown]
  - Malignant neoplasm progression [Unknown]
  - Lymphangiosis carcinomatosa [Fatal]
  - Blood pressure decreased [Unknown]
  - Respiratory failure [Unknown]
  - Cardiac arrest [Fatal]
  - Death [Fatal]

NARRATIVE: CASE EVENT DATE: 20250601
